FAERS Safety Report 7717480-6 (Version None)
Quarter: 2011Q3

REPORT INFORMATION
  Report Type: 
  Country: None (occurrence: None)
  Receive Date: 20110824
  Receipt Date: 20110802
  Transmission Date: 20111222
  Serious: Yes (Hospitalization)
  Sender: FDA-Public Use
  Company Number: 998695

PATIENT

DRUGS (4)
  1. DEXTROSE 5% AND SODIUM CHLORIDE 0.45% [Suspect]
     Indication: OESOPHAGOGASTRODUODENOSCOPY
     Route: 041
     Dates: start: 20110726
  2. DEXTROSE 5% AND SODIUM CHLORIDE 0.45% [Suspect]
     Indication: BIOPSY
     Route: 041
     Dates: start: 20110726
  3. FENTANYL CITRATE [Concomitant]
  4. VERSED [Concomitant]

REACTIONS (4)
  - VIRAL INFECTION [None]
  - BACTERIAL INFECTION [None]
  - PYREXIA [None]
  - CHILLS [None]
